FAERS Safety Report 9316146 (Version 8)
Quarter: 2014Q2

REPORT INFORMATION
  Report Type: Report from Study
  Country: CA (occurrence: CA)
  Receive Date: 20130530
  Receipt Date: 20140529
  Transmission Date: 20141212
  Serious: Yes (Other)
  Sender: FDA-Public Use
  Company Number: CA-ROCHE-1168336

PATIENT
  Age: 68 Year
  Sex: Female
  Weight: 131.5 kg

DRUGS (17)
  1. RITUXAN [Suspect]
     Indication: RHEUMATOID ARTHRITIS
     Route: 042
     Dates: start: 20091127
  2. RITUXAN [Suspect]
     Route: 042
     Dates: start: 20130620
  3. RITUXAN [Suspect]
     Dosage: LAST DOSE RECEIVED ON 05 FEB 2014
     Route: 042
     Dates: start: 20140122
  4. PREDNISONE [Suspect]
     Indication: PRODUCT USED FOR UNKNOWN INDICATION
     Route: 065
  5. SULPHASALAZINE [Concomitant]
  6. PLAQUENIL [Concomitant]
  7. CELEBREX [Concomitant]
  8. LOSEC MUPS [Concomitant]
  9. SYNTHROID [Concomitant]
  10. HYZAAR [Concomitant]
  11. TYLENOL ARTHRITIS [Concomitant]
  12. DIPHENHYDRAMINE HCL [Concomitant]
     Indication: PREMEDICATION
     Route: 048
     Dates: start: 20091027
  13. DIPHENHYDRAMINE HCL [Concomitant]
     Route: 048
     Dates: start: 20091117
  14. ACETAMINOPHEN [Concomitant]
     Indication: PREMEDICATION
     Route: 048
     Dates: start: 20091027
  15. ACETAMINOPHEN [Concomitant]
     Route: 048
     Dates: start: 20091117
  16. METHYLPREDNISOLON [Concomitant]
     Indication: PREMEDICATION
     Route: 042
     Dates: start: 20091027
  17. METHYLPREDNISOLON [Concomitant]
     Route: 042
     Dates: start: 20091117

REACTIONS (9)
  - Blood pressure fluctuation [Not Recovered/Not Resolved]
  - Pneumonia [Recovering/Resolving]
  - Osteopenia [Not Recovered/Not Resolved]
  - Blood pressure systolic increased [Recovering/Resolving]
  - Blood pressure diastolic decreased [Not Recovered/Not Resolved]
  - Spinal pain [Not Recovered/Not Resolved]
  - Cough [Not Recovered/Not Resolved]
  - Hypertension [Unknown]
  - Rheumatoid arthritis [Unknown]
